FAERS Safety Report 18141518 (Version 2)
Quarter: 2020Q3

REPORT INFORMATION
  Report Type: Report from Study
  Country: US (occurrence: US)
  Receive Date: 20200812
  Receipt Date: 20200818
  Transmission Date: 20201103
  Serious: No
  Sender: FDA-Public Use
  Company Number: NVSC2020US221600

PATIENT
  Age: 79 Year
  Sex: Female

DRUGS (2)
  1. ENTRESTO [Suspect]
     Active Substance: SACUBITRIL\VALSARTAN
     Indication: CARDIAC FAILURE
     Dosage: 24.26 MG, BID
     Route: 048
     Dates: start: 201912, end: 20200807
  2. ENTRESTO [Suspect]
     Active Substance: SACUBITRIL\VALSARTAN
     Dosage: 24.26 MG, BID
     Route: 048
     Dates: start: 201912, end: 20200814

REACTIONS (6)
  - Gait disturbance [Unknown]
  - Depression [Not Recovered/Not Resolved]
  - Hypersomnia [Unknown]
  - Sleep disorder [Not Recovered/Not Resolved]
  - Throat clearing [Unknown]
  - Fatigue [Unknown]

NARRATIVE: CASE EVENT DATE: 201912
